FAERS Safety Report 12582439 (Version 1)
Quarter: 2016Q3

REPORT INFORMATION
  Report Type: Spontaneous
  Country: US (occurrence: None)
  Receive Date: 20160721
  Receipt Date: 20160721
  Transmission Date: 20161109
  Serious: Yes (Other)
  Sender: FDA-Public Use
  Company Number: None

PATIENT
  Age: 73 Year
  Sex: Male
  Weight: 112.49 kg

DRUGS (8)
  1. CALCIUM + V D [Concomitant]
  2. GLEVE [Concomitant]
  3. GARLIC. [Concomitant]
     Active Substance: GARLIC
  4. LIDOCAINE VISCOUS [Suspect]
     Active Substance: LIDOCAINE HYDROCHLORIDE
     Indication: OROPHARYNGEAL PAIN
     Dosage: SWISH 10 ML IN MOUTH TABLESPOON 3 TIMES
     Route: 048
     Dates: start: 20160419
  5. V-C [Concomitant]
  6. CALTRATE [Concomitant]
     Active Substance: CALCIUM CARBONATE
  7. LIDOCAINE VISCOUS [Suspect]
     Active Substance: LIDOCAINE HYDROCHLORIDE
     Indication: APHTHOUS ULCER
     Dosage: SWISH 10 ML IN MOUTH TABLESPOON 3 TIMES
     Route: 048
     Dates: start: 20160419
  8. CENTRUM [Concomitant]
     Active Substance: VITAMINS

REACTIONS (2)
  - Ageusia [None]
  - Hypoaesthesia [None]

NARRATIVE: CASE EVENT DATE: 20160419
